FAERS Safety Report 6353337-3 (Version None)
Quarter: 2009Q3

REPORT INFORMATION
  Report Type: 
  Country: None (occurrence: None)
  Receive Date: 20090912
  Receipt Date: 20090422
  Transmission Date: 20100115
  Serious: No
  Sender: FDA-Public Use
  Company Number: US-BAUSCH-2009BL001871

PATIENT
  Age: 64 Year
  Sex: Male

DRUGS (2)
  1. TROPICAMIDE [Suspect]
     Indication: DIAGNOSTIC PROCEDURE
     Route: 047
     Dates: start: 20090331, end: 20090331
  2. PILOCARPINE HYDROCHLORIDE [Concomitant]
     Indication: GLAUCOMA
     Route: 047

REACTIONS (4)
  - DIPLOPIA [None]
  - DRUG EFFECT PROLONGED [None]
  - PHOTOPHOBIA [None]
  - VISION BLURRED [None]
